FAERS Safety Report 4397068-8 (Version None)
Quarter: 2004Q3

REPORT INFORMATION
  Report Type: 
  Country: None (occurrence: None)
  Receive Date: 20040708
  Receipt Date: 20040630
  Transmission Date: 20050211
  Serious: Yes (Other)
  Sender: FDA-Public Use
  Company Number: 2004-06-2165

PATIENT
  Age: 88 Year
  Sex: Female

DRUGS (8)
  1. AERIUS (DESLORATADINE) TABLETS         'LIKE CLARINEX' [Suspect]
     Dosage: 5 MG QD ORAL
     Route: 048
     Dates: start: 20040615, end: 20040615
  2. COVERSYL [Concomitant]
  3. FUROSEMIDE [Concomitant]
  4. FELODIPINE [Concomitant]
  5. TARDYFERON [Concomitant]
  6. OMEPRAZOLE [Concomitant]
  7. NITROGLYCERIN [Concomitant]
  8. BECOTIDE [Concomitant]

REACTIONS (1)
  - ACUTE GENERALISED EXANTHEMATOUS PUSTULOSIS [None]
